FAERS Safety Report 8634050 (Version 2)
Quarter: 2013Q3

REPORT INFORMATION
  Report Type: Spontaneous
  Country: US (occurrence: US)
  Receive Date: 20120626
  Receipt Date: 20130722
  Transmission Date: 20140515
  Serious: Yes (Disabling)
  Sender: FDA-Public Use
  Company Number: US-ASTRAZENECA-2012SE36261

PATIENT
  Sex: Female
  Weight: 73 kg

DRUGS (11)
  1. NEXIUM [Suspect]
     Dosage: 1 DAILY
     Route: 048
     Dates: end: 201210
  2. DEXILANT [Concomitant]
  3. TUMS [Concomitant]
  4. ADVIL [Concomitant]
  5. SALSALATE [Concomitant]
     Dates: start: 20111214
  6. ALLOPURINOL [Concomitant]
     Dates: start: 20111214
  7. PROMETHAZINE HCL [Concomitant]
     Dates: start: 20111214
  8. SIMVASTATIN [Concomitant]
     Dates: start: 20111214
  9. TIZANIDINE HCL [Concomitant]
  10. GABAPENTIN [Concomitant]
     Dates: start: 20111116
  11. CRESTOR [Concomitant]
     Dates: start: 20111020

REACTIONS (7)
  - General physical health deterioration [Unknown]
  - Osteoporosis [Unknown]
  - Wrist fracture [Unknown]
  - Arthritis [Unknown]
  - Cataract [Unknown]
  - Type 2 diabetes mellitus [Unknown]
  - Rheumatoid arthritis [Unknown]
